FAERS Safety Report 4821467-0 (Version None)
Quarter: 2005Q4

REPORT INFORMATION
  Report Type: 
  Country: None (occurrence: None)
  Receive Date: 20051107
  Receipt Date: 20050909
  Transmission Date: 20060501
  Serious: Yes (Death, Life-Threatening, Hospitalization, Other)
  Sender: FDA-Public Use
  Company Number: PHFR2005GB03015

PATIENT
  Age: 57 Year
  Sex: Female

DRUGS (6)
  1. VOLTAREN [Suspect]
     Indication: SCIATICA
     Dosage: 75MG, BID
     Route: 048
     Dates: start: 20050801, end: 20050815
  2. ENOXAPARIN SODIUM [Concomitant]
     Dosage: 20MG/DAY
     Route: 058
  3. ACETAMINOPHEN [Concomitant]
     Dosage: 1G/DAY
     Route: 048
     Dates: start: 20050815
  4. CYCLIZINE [Concomitant]
     Dosage: 50 MG, TID, PRN
     Route: 048
  5. MORPHINE [Concomitant]
     Dosage: 5-10MG 2-4HOURLY
     Route: 048
  6. SENNA [Concomitant]
     Route: 048

REACTIONS (10)
  - ACUTE RESPIRATORY DISTRESS SYNDROME [None]
  - ATRIOVENTRICULAR BLOCK [None]
  - BRONCHOPNEUMONIA [None]
  - DYSPNOEA [None]
  - GASTRIC ULCER PERFORATION [None]
  - HEPATIC STEATOSIS [None]
  - HYPOTENSION [None]
  - HYPOXIA [None]
  - PERITONITIS [None]
  - TACHYCARDIA [None]
